FAERS Safety Report 6696369-8 (Version None)
Quarter: 2010Q2

REPORT INFORMATION
  Report Type: 
  Country: None (occurrence: None)
  Receive Date: 20100426
  Receipt Date: 20100408
  Transmission Date: 20101027
  Serious: Yes (Death, Hospitalization)
  Sender: FDA-Public Use
  Company Number: ES-ROCHE-664477

PATIENT
  Sex: Female
  Weight: 77 kg

DRUGS (4)
  1. CAPECITABINE [Suspect]
     Indication: DRUG USE FOR UNKNOWN INDICATION
     Dosage: STOPPED.
     Route: 048
     Dates: start: 20090518, end: 20091018
  2. ENALAPRIL MALEATE [Concomitant]
     Dates: start: 20090101, end: 20091016
  3. FUROSEMID [Concomitant]
     Dates: start: 20091019, end: 20091027
  4. DACORTIN [Concomitant]
     Dates: start: 20091019

REACTIONS (2)
  - DISEASE PROGRESSION [None]
  - DYSPNOEA [None]
